FAERS Safety Report 5873953-2 (Version None)
Quarter: 2008Q3

REPORT INFORMATION
  Report Type: 
  Country: None (occurrence: None)
  Receive Date: 20080908
  Receipt Date: 20080828
  Transmission Date: 20090109
  Serious: Yes (Life-Threatening)
  Sender: FDA-Public Use
  Company Number: US-MERCK-0808USA05395

PATIENT
  Age: 53 Year
  Sex: Male

DRUGS (3)
  1. JANUVIA [Suspect]
     Indication: TYPE 1 DIABETES MELLITUS
     Route: 048
     Dates: start: 20061001
  2. INSULIN [Concomitant]
     Route: 065
  3. ACTOS [Concomitant]
     Route: 065

REACTIONS (2)
  - METASTASES TO LUNG [None]
  - RENAL CELL CARCINOMA [None]
